FAERS Safety Report 5415087-7 (Version None)
Quarter: 2007Q3

REPORT INFORMATION
  Report Type: 
  Country: None (occurrence: None)
  Receive Date: 20070815
  Receipt Date: 20070525
  Transmission Date: 20080115
  Serious: No
  Sender: FDA-Public Use
  Company Number: A0653119A

PATIENT

DRUGS (7)
  1. COREG CR [Suspect]
     Indication: HYPERTENSION
     Dosage: 20MG PER DAY
     Route: 048
     Dates: start: 20070522
  2. LASIX [Concomitant]
  3. WARFARIN SODIUM [Concomitant]
  4. PREMARIN [Concomitant]
  5. CARDIZEM LA [Concomitant]
  6. PAXIL [Concomitant]
  7. LANOXIN [Concomitant]

REACTIONS (1)
  - POLLAKIURIA [None]
